FAERS Safety Report 11414913 (Version 1)
Quarter: 2015Q3

REPORT INFORMATION
  Report Type: Spontaneous
  Country: CN (occurrence: CN)
  Receive Date: 20150825
  Receipt Date: 20150825
  Transmission Date: 20151125
  Serious: Yes (Death, Other)
  Sender: FDA-Public Use
  Company Number: CN-ALEMBIC PHARMACUETICALS LIMITED-2015SCAL000500

PATIENT
  Age: 21 Year
  Sex: Male

DRUGS (1)
  1. LAMOTRIGINE. [Suspect]
     Active Substance: LAMOTRIGINE
     Indication: POST-TRAUMATIC EPILEPSY
     Dosage: UNK

REACTIONS (4)
  - Obliterative bronchiolitis [Fatal]
  - Drug reaction with eosinophilia and systemic symptoms [Fatal]
  - Respiratory failure [Fatal]
  - Hepatic failure [Fatal]
